FAERS Safety Report 7147946-1 (Version None)
Quarter: 2010Q4

REPORT INFORMATION
  Report Type: 
  Country: None (occurrence: None)
  Receive Date: 20101209
  Receipt Date: 20101130
  Transmission Date: 20110411
  Serious: Yes (Other)
  Sender: FDA-Public Use
  Company Number: CA-JNJFOC-20100602510

PATIENT
  Sex: Female
  Weight: 62 kg

DRUGS (16)
  1. REMICADE [Suspect]
     Indication: CROHN'S DISEASE
     Route: 042
  2. REMICADE [Suspect]
     Route: 042
  3. REMICADE [Suspect]
     Indication: COLITIS ULCERATIVE
     Route: 042
  4. REMICADE [Suspect]
     Route: 042
  5. ALENDRONATE [Concomitant]
     Dosage: DOSE:70
  6. LYRICA [Concomitant]
     Dosage: DOSE:75
  7. VITAMIN B-12 [Concomitant]
     Route: 050
  8. SLOW-K [Concomitant]
  9. QUETIAPINE FUMARATE [Concomitant]
     Dosage: DOSE: 12.5-25
  10. PLAVIX [Concomitant]
     Dosage: DOSE:75
  11. CRESTOR [Concomitant]
     Dosage: DOSE:10
  12. HYZAAR [Concomitant]
     Dosage: DOSE: 100/12.5
  13. TECTA [Concomitant]
     Dosage: DOSE: 40
  14. OXAZEPAM [Concomitant]
     Dosage: DOSE:30
  15. ALPRAZOLAM [Concomitant]
  16. ATIVAN [Concomitant]
     Dosage: DOSE:0.5
     Route: 060

REACTIONS (7)
  - ANGINA PECTORIS [None]
  - HEADACHE [None]
  - HEART RATE DECREASED [None]
  - HEART RATE IRREGULAR [None]
  - INFUSION RELATED REACTION [None]
  - NAUSEA [None]
  - PALPITATIONS [None]
